FAERS Safety Report 13943691 (Version 1)
Quarter: 2017Q3

REPORT INFORMATION
  Report Type: Spontaneous
  Country: US (occurrence: US)
  Receive Date: 20170907
  Receipt Date: 20170907
  Transmission Date: 20171128
  Serious: No
  Sender: FDA-Public Use
  Company Number: US-OC PHARMA-000003

PATIENT
  Age: 28 Year
  Sex: Female

DRUGS (2)
  1. LEVONORGESTREL. [Suspect]
     Active Substance: LEVONORGESTREL
     Indication: PRODUCT USED FOR UNKNOWN INDICATION
     Route: 015
  2. LORATADINE AND PSEUDOEPHEDRINE SULFATE [Concomitant]
     Active Substance: LORATADINE\PSEUDOEPHEDRINE SULFATE
     Indication: HYPERSENSITIVITY

REACTIONS (1)
  - Lichen planus [Recovered/Resolved]
